FAERS Safety Report 7649840-6 (Version None)
Quarter: 2011Q3

REPORT INFORMATION
  Report Type: 
  Country: None (occurrence: None)
  Receive Date: 20110802
  Receipt Date: 20110720
  Transmission Date: 20111222
  Serious: Yes (Hospitalization)
  Sender: FDA-Public Use
  Company Number: US-ASTRAZENECA-2008UW22597

PATIENT
  Age: 30 Year
  Sex: Male
  Weight: 97.5 kg

DRUGS (24)
  1. GEODON [Concomitant]
     Dates: start: 20061201
  2. ALPRAZOLAM [Concomitant]
     Dosage: 1 MG Q 6 HOURS PRN
     Dates: start: 20061009
  3. TEMAZEPAM [Concomitant]
     Dates: start: 20061009
  4. CYMBALTA [Concomitant]
     Dates: start: 20050510
  5. ZONEGRAN [Concomitant]
     Dates: start: 20050601
  6. DEMEROL [Concomitant]
     Dates: start: 20061010
  7. SEROQUEL [Suspect]
     Dosage: 200MG IN THE AM AND 300 MG IN QHS
     Route: 048
     Dates: start: 20061009
  8. HYDROCODONE BITARTRATE AND ACETAMINOPHEN [Concomitant]
     Dosage: 5/15
     Dates: start: 20021004
  9. ALPRAZOLAM [Concomitant]
     Dates: start: 20050513
  10. SEROQUEL [Suspect]
     Indication: BIPOLAR DISORDER
     Dosage: 100 TO 300 MG
     Route: 048
     Dates: start: 20050608, end: 20061011
  11. SEROQUEL [Suspect]
     Dosage: 200MG IN THE AM AND 300 MG IN QHS
     Route: 048
     Dates: start: 20061009
  12. ABILIFY [Concomitant]
     Dates: start: 20081101
  13. GEODON [Concomitant]
     Dates: start: 20090201
  14. HYDROCODONE BITARTRATE AND ACETAMINOPHEN [Concomitant]
     Dosage: 7.5/24
     Dates: start: 20030609
  15. DEPAKOTE [Concomitant]
     Dates: start: 20050517
  16. WELLBUTRIN XL [Concomitant]
     Dates: start: 20061009
  17. PROMETHAZINE [Concomitant]
     Dosage: 25 MG Q 3 HOURS PRN
     Dates: start: 20061009
  18. PENICILLIN V POTASSIUM [Concomitant]
     Dates: start: 20050111
  19. SEROQUEL [Suspect]
     Indication: SCHIZOPHRENIA
     Dosage: 100 TO 300 MG
     Route: 048
     Dates: start: 20050608, end: 20061011
  20. SULFAMETH TMP [Concomitant]
     Dates: start: 20021004
  21. RISPERDAL [Concomitant]
     Dates: start: 20060202
  22. DIAZEPAM [Concomitant]
     Dates: start: 20050519
  23. DIAZEPAM [Concomitant]
     Dates: start: 20061009
  24. NALBUPHINE [Concomitant]
     Dosage: 10 MG Q 3 HOURS PRN
     Dates: start: 20061009

REACTIONS (3)
  - HEPATITIS C [None]
  - TYPE 2 DIABETES MELLITUS [None]
  - BACK PAIN [None]
